FAERS Safety Report 6575289-3 (Version None)
Quarter: 2010Q1

REPORT INFORMATION
  Report Type: 
  Country: None (occurrence: None)
  Receive Date: 20100209
  Receipt Date: 20100203
  Transmission Date: 20100710
  Serious: Yes (Death)
  Sender: FDA-Public Use
  Company Number: US-ROCHE-678636

PATIENT
  Sex: Female
  Weight: 59 kg

DRUGS (11)
  1. CAPECITABINE [Suspect]
     Route: 048
     Dates: start: 20091015
  2. CITALOPRAM [Concomitant]
  3. FENTANYL-100 [Concomitant]
  4. VITAMIN B-12 [Concomitant]
  5. IMODIUM [Concomitant]
     Dosage: PRN
  6. LORAZEPAM [Concomitant]
  7. POTASSIUM CHLORIDE [Concomitant]
     Dosage: 10 MEQ EVERY DAY
  8. PHENERGAN HCL [Concomitant]
  9. DARVOCET [Concomitant]
     Dosage: 100/650 MG Q6H PRN
  10. TYLENOL-500 [Concomitant]
     Dosage: PRN
  11. BENADRYL [Concomitant]
     Dosage: PRN

REACTIONS (1)
  - DEATH [None]
